FAERS Safety Report 20967449 (Version 1)
Quarter: 2022Q2

REPORT INFORMATION
  Report Type: Spontaneous
  Country: US (occurrence: US)
  Receive Date: 20220616
  Receipt Date: 20220616
  Transmission Date: 20220720
  Serious: Yes (Other)
  Sender: FDA-Public Use
  Company Number: US-Atnahs Limited-ATNAHS20220605879

PATIENT
  Age: 63 Year
  Sex: Female
  Weight: 56.7 kg

DRUGS (53)
  1. VALIUM [Suspect]
     Active Substance: DIAZEPAM
     Indication: Product used for unknown indication
     Dates: start: 20201012
  2. FIRDAPSE [Suspect]
     Active Substance: AMIFAMPRIDINE PHOSPHATE
     Indication: Myasthenic syndrome
     Dates: start: 202008, end: 202008
  3. FIRDAPSE [Suspect]
     Active Substance: AMIFAMPRIDINE PHOSPHATE
     Dates: start: 20200816, end: 20201002
  4. FIRDAPSE [Suspect]
     Active Substance: AMIFAMPRIDINE PHOSPHATE
     Dates: start: 20200926, end: 20200926
  5. FIRDAPSE [Suspect]
     Active Substance: AMIFAMPRIDINE PHOSPHATE
     Dates: start: 20200927, end: 202010
  6. FIRDAPSE [Suspect]
     Active Substance: AMIFAMPRIDINE PHOSPHATE
     Dosage: ONCE OR TWICE A DAY
  7. FIRDAPSE [Suspect]
     Active Substance: AMIFAMPRIDINE PHOSPHATE
     Dosage: 15 MG, ONCE OR TWICE A DAY
  8. FIRDAPSE [Suspect]
     Active Substance: AMIFAMPRIDINE PHOSPHATE
  9. FIRDAPSE [Suspect]
     Active Substance: AMIFAMPRIDINE PHOSPHATE
     Dosage: SHE SETS THE DOSAGE HERSELF
  10. FIRDAPSE [Suspect]
     Active Substance: AMIFAMPRIDINE PHOSPHATE
     Dosage: 4.5 TABLETS (45 MG) DAILY, DIVIDED INTO 2 OR 3 DOSES
  11. FIRDAPSE [Suspect]
     Active Substance: AMIFAMPRIDINE PHOSPHATE
     Dosage: 4 1/2 TABLETS (45 MG) DAILY IN DIVIDED DOSE
  12. GAMMAGARD LIQUID [Suspect]
     Active Substance: HUMAN IMMUNOGLOBULIN G
     Indication: Product used for unknown indication
     Dates: start: 2020
  13. GAMMAGARD LIQUID [Suspect]
     Active Substance: HUMAN IMMUNOGLOBULIN G
  14. GAMMAGARD LIQUID [Suspect]
     Active Substance: HUMAN IMMUNOGLOBULIN G
  15. LEVOTHYROXINE [Concomitant]
     Active Substance: LEVOTHYROXINE
     Indication: Product used for unknown indication
  16. LIOTHYRONINE [Concomitant]
     Active Substance: LIOTHYRONINE
     Indication: Product used for unknown indication
  17. CLARITIN [Concomitant]
     Active Substance: LORATADINE
     Indication: Product used for unknown indication
  18. MEDROL [Concomitant]
     Active Substance: METHYLPREDNISOLONE
     Indication: Product used for unknown indication
  19. DICLOFENAC SODIUM [Concomitant]
     Active Substance: DICLOFENAC SODIUM
     Indication: Product used for unknown indication
  20. ALPHA LIPOIC ACID (DIETARY SUPPLEMENT [Concomitant]
     Indication: Product used for unknown indication
  21. VITAMIN B-COMPLEX (DIETARY SUPPLEMENT) [Concomitant]
     Indication: Product used for unknown indication
  22. BIO COMPLETE 3 (DIETARY SUPPLEMENT) [Concomitant]
     Indication: Product used for unknown indication
  23. CALCIUM (DIETARY SUPPLEMENT) [Concomitant]
     Indication: Product used for unknown indication
  24. OENZYME Q-10 (DIETARY SUPPLEMENT) [Concomitant]
     Indication: Product used for unknown indication
  25. CURCUMIN (DIETARY SUPPLEMENT) [Concomitant]
     Indication: Product used for unknown indication
  26. GRAPE SEED EXTRACT (DIETARY SUPPLEMENT) [Concomitant]
     Indication: Product used for unknown indication
  27. GINKO BILOBA (DIETARY SUPPLEMENT) [Concomitant]
     Indication: Product used for unknown indication
  28. GLUCOSAMINE (DIETARY SUPPLEMENT) [Concomitant]
     Indication: Product used for unknown indication
  29. GLUCOSAMINE (DIETARY SUPPLEMENT) [Concomitant]
     Indication: Product used for unknown indication
  30. LEMON BALM (DIETARY SUPPLEMENT) [Concomitant]
     Indication: Product used for unknown indication
  31. L-GLUTAMINE (DIETARY SUPPLEMENT) [Concomitant]
     Indication: Product used for unknown indication
  32. LIONS MANE (DIETARY SUPPLEMENT) [Concomitant]
     Indication: Product used for unknown indication
  33. MANGANESE (DIETARY SUPPLEMENT) [Concomitant]
     Indication: Product used for unknown indication
  34. MONOLAURIN (DIETARY SUPPLEMENT) [Concomitant]
     Indication: Product used for unknown indication
  35. MULTI-VITAMIN (DIETARY SUPPLEMENT) [Concomitant]
     Indication: Product used for unknown indication
  36. MSM (DIETARY SUPPLEMENT) [Concomitant]
     Indication: Product used for unknown indication
  37. N-ACETYLCYSTEINE (DIETARY SUPPLEMENT) [Concomitant]
     Indication: Product used for unknown indication
  38. OMEGA 3 VITAMINS (DIETARY SUPPLEMENT) [Concomitant]
     Indication: Product used for unknown indication
  39. SAM-E (DIETARY SUPPLEMENT) [Concomitant]
     Indication: Product used for unknown indication
  40. STINGING NETTLE (DIETARY SUPPLEMENT) [Concomitant]
     Indication: Product used for unknown indication
  41. TOTAL RESTORE (DIETARY SUPPLEMENT) [Concomitant]
     Indication: Product used for unknown indication
  42. VITAMIN D3 [Concomitant]
     Active Substance: CHOLECALCIFEROL
     Indication: Product used for unknown indication
  43. VITAMIN C (DIETARY SUPPLEMENT) [Concomitant]
     Indication: Product used for unknown indication
  44. ELIQUIS [Concomitant]
     Active Substance: APIXABAN
     Indication: Product used for unknown indication
  45. GABAPENTIN [Concomitant]
     Active Substance: GABAPENTIN
     Indication: Product used for unknown indication
  46. ZOFRAN [Concomitant]
     Active Substance: ONDANSETRON HYDROCHLORIDE
     Indication: Product used for unknown indication
  47. CHONDROITIN SULFATE (DIETARY SUPPLEMENT) [Concomitant]
     Indication: Product used for unknown indication
  48. IMODIUM (LOPERAMIDE HYDROCHLORIDE) [Concomitant]
     Indication: Product used for unknown indication
  49. TURMERIC (DIETARY SUPPLEMENT) [Concomitant]
     Indication: Product used for unknown indication
  50. VITAMIN B12 (DIETARY SUPPLEMENT) [Concomitant]
     Indication: Product used for unknown indication
  51. VUMERITY [Concomitant]
     Active Substance: DIROXIMEL FUMARATE
     Indication: Product used for unknown indication
  52. PROBIOTIC (DIETARY SUPPLEMENT) [Concomitant]
     Indication: Product used for unknown indication
  53. IRON (DIETARY SUPPLEMENT) [Concomitant]
     Indication: Product used for unknown indication

REACTIONS (39)
  - Supraventricular tachycardia [Recovered/Resolved]
  - Neuropathy peripheral [Unknown]
  - Supraventricular extrasystoles [Unknown]
  - Ventricular extrasystoles [Unknown]
  - Atrial fibrillation [Unknown]
  - Palpitations [Recovered/Resolved]
  - Cough [Not Recovered/Not Resolved]
  - Chest discomfort [Unknown]
  - Oropharyngeal pain [Not Recovered/Not Resolved]
  - Psychomotor hyperactivity [Unknown]
  - Discomfort [Recovered/Resolved]
  - Anxiety [Unknown]
  - Nervousness [Unknown]
  - Photopsia [Recovered/Resolved]
  - Feeling abnormal [Not Recovered/Not Resolved]
  - Lethargy [Not Recovered/Not Resolved]
  - Head discomfort [Not Recovered/Not Resolved]
  - Inflammation [Not Recovered/Not Resolved]
  - Pain in jaw [Recovered/Resolved]
  - Decreased appetite [Unknown]
  - Weight decreased [Unknown]
  - Illness [Unknown]
  - Therapeutic product effect incomplete [Unknown]
  - Inhibitory drug interaction [Unknown]
  - Intentional product misuse [Unknown]
  - Tachycardia [Recovered/Resolved]
  - Joint injury [Unknown]
  - Central nervous system lesion [Unknown]
  - Gait disturbance [Unknown]
  - Dizziness [Recovering/Resolving]
  - Insomnia [Unknown]
  - Insomnia [Recovered/Resolved]
  - Paraesthesia [Recovered/Resolved]
  - Hypertension [Unknown]
  - Asthenia [Not Recovered/Not Resolved]
  - Headache [Recovering/Resolving]
  - Nausea [Not Recovered/Not Resolved]
  - Muscular weakness [Unknown]
  - Abdominal pain upper [Unknown]

NARRATIVE: CASE EVENT DATE: 20200801
